FAERS Safety Report 9117782 (Version 1)
Quarter: 2013Q1

REPORT INFORMATION
  Report Type: Spontaneous
  Country: JP (occurrence: JP)
  Receive Date: 20130208
  Receipt Date: 20130208
  Transmission Date: 20140127
  Serious: Yes (Death)
  Sender: FDA-Public Use
  Company Number: JP-ASTRAZENECA-2013SE08430

PATIENT
  Age: 57 Year
  Sex: Female

DRUGS (3)
  1. MEROPEN [Suspect]
     Route: 042
     Dates: start: 200909, end: 200910
  2. ALEVIATIN [Suspect]
     Route: 042
  3. VALPROATE SODIUM [Suspect]
     Route: 048
     Dates: start: 200909, end: 200910

REACTIONS (2)
  - Toxic epidermal necrolysis [Fatal]
  - Multi-organ failure [Fatal]
